FAERS Safety Report 14563001 (Version 1)
Quarter: 2018Q1

REPORT INFORMATION
  Report Type: Report from Study
  Country: BE (occurrence: BE)
  Receive Date: 20180222
  Receipt Date: 20180222
  Transmission Date: 20180509
  Serious: Yes (Other)
  Sender: FDA-Public Use
  Company Number: BE-BAUSCH-BL-2018-004878

PATIENT
  Age: 65 Year
  Sex: Female

DRUGS (4)
  1. 5-FU [Suspect]
     Active Substance: FLUOROURACIL
     Indication: COLORECTAL CANCER METASTATIC
     Route: 042
     Dates: start: 20161003
  2. BEVACIZUMAB. [Suspect]
     Active Substance: BEVACIZUMAB
     Indication: COLORECTAL CANCER METASTATIC
     Route: 042
     Dates: start: 20161003
  3. IRINOTECAN [Suspect]
     Active Substance: IRINOTECAN
     Indication: COLORECTAL CANCER METASTATIC
     Route: 042
     Dates: start: 20161003
  4. LEUCOVORIN. [Suspect]
     Active Substance: LEUCOVORIN
     Indication: COLORECTAL CANCER METASTATIC
     Dosage: 1 DOSAGE FORM IN EVERY CYCLE
     Route: 042
     Dates: start: 20161003

REACTIONS (13)
  - Abdominal pain [Recovering/Resolving]
  - Pain [Recovered/Resolved]
  - Fatigue [Recovered/Resolved]
  - Tooth fracture [Recovered/Resolved]
  - Cholestasis [Recovering/Resolving]
  - Vomiting [Recovered/Resolved]
  - Hypertension [Recovered/Resolved]
  - Stomatitis [Recovering/Resolving]
  - Nasopharyngitis [Recovered/Resolved]
  - Tooth abscess [Recovered/Resolved]
  - Arthralgia [Recovering/Resolving]
  - Thrombocytopenia [Recovered/Resolved]
  - Nausea [Recovered/Resolved]

NARRATIVE: CASE EVENT DATE: 20161031
